FAERS Safety Report 11149176 (Version 1)
Quarter: 2015Q2

REPORT INFORMATION
  Report Type: Spontaneous
  Country: BR (occurrence: BR)
  Receive Date: 20150529
  Receipt Date: 20150529
  Transmission Date: 20150821
  Serious: Yes (Hospitalization, Other)
  Sender: FDA-Public Use
  Company Number: BR-GLAXOSMITHKLINE INC.-BR2015GSK071256

PATIENT
  Age: 71 Year
  Sex: Female
  Weight: 65 kg

DRUGS (7)
  1. ACETYLSALICYLIC ACID [Concomitant]
     Active Substance: ASPIRIN
     Indication: COAGULOPATHY
     Dosage: 2 UNK, QD
     Route: 048
  2. LOSARTAN 50 [Concomitant]
     Indication: BLOOD PRESSURE
     Dosage: 2 UNK, QD
     Route: 048
  3. SIMVASTATIN. [Concomitant]
     Active Substance: SIMVASTATIN
     Indication: BLOOD CHOLESTEROL
     Dosage: 1 UNK, QD
     Route: 048
  4. OSCAL D (CALCIUM CARBONATE + VITAMIN D) [Concomitant]
     Indication: CALCIUM DEFICIENCY
     Route: 048
  5. SERETIDE [Suspect]
     Active Substance: FLUTICASONE FUROATE\SALMETEROL XINAFOATE
     Indication: CHRONIC OBSTRUCTIVE PULMONARY DISEASE
     Dosage: 3 PUFF(S), BID
     Route: 055
  6. DAFLON (DIOSMINA) [Concomitant]
     Indication: PERIPHERAL SWELLING
     Dosage: 2 UNK, QD
     Route: 048
  7. NATRILIX SR (INDAPAMIDE) [Concomitant]
     Indication: BLOOD PRESSURE
     Dosage: 1 UNK, QD
     Route: 048

REACTIONS (3)
  - Malaise [Not Recovered/Not Resolved]
  - Chronic obstructive pulmonary disease [Not Recovered/Not Resolved]
  - Pneumonia [Not Recovered/Not Resolved]

NARRATIVE: CASE EVENT DATE: 20150509
